FAERS Safety Report 6029859-1 (Version None)
Quarter: 2009Q1

REPORT INFORMATION
  Report Type: 
  Country: None (occurrence: None)
  Receive Date: 20090106
  Receipt Date: 20090106
  Transmission Date: 20090719
  Serious: Yes (Disabling, Other)
  Sender: FDA-Public Use
  Company Number: None

PATIENT
  Sex: Female

DRUGS (1)
  1. ISOSORBIDE MONONITRATE [Suspect]
     Indication: CARDIOVASCULAR DISORDER
     Dosage: CAN'T REMEMBER X 1 DAILY ORALLY
     Route: 048
     Dates: start: 20071006, end: 20081006

REACTIONS (4)
  - DRY MOUTH [None]
  - OVERDOSE [None]
  - SALIVARY GLAND DISORDER [None]
  - TOOTH INJURY [None]
